FAERS Safety Report 5037521-7 (Version None)
Quarter: 2006Q2

REPORT INFORMATION
  Report Type: 
  Country: None (occurrence: None)
  Receive Date: 20060608
  Receipt Date: 20060320
  Transmission Date: 20061013
  Serious: Yes (Other)
  Sender: FDA-Public Use
  Company Number: HQWYE480123MAR06

PATIENT
  Age: 14 Month
  Sex: Female
  Weight: 9.08 kg

DRUGS (3)
  1. LORATADINE [Suspect]
     Indication: RHINORRHOEA
     Dosage: 1/4 OF A TABLET X 1, ORAL
     Route: 048
     Dates: start: 20060301, end: 20060301
  2. LORATADINE [Suspect]
     Indication: RHINORRHOEA
     Dosage: 1/4 OF A TABLET X 1, ORAL
     Route: 048
     Dates: start: 20060319, end: 20060319
  3. TYLENOL INFANTS DROPS (PARACETAMOL) [Concomitant]

REACTIONS (1)
  - CONVULSION [None]
